FAERS Safety Report 4617071-X (Version None)
Quarter: 2005Q1

REPORT INFORMATION
  Report Type: 
  Country: None (occurrence: None)
  Receive Date: 20050323
  Receipt Date: 20050314
  Transmission Date: 20050727
  Serious: Yes (Hospitalization)
  Sender: FDA-Public Use
  Company Number: JP-JNJFOC-20050204394

PATIENT
  Age: 49 Year
  Sex: Female

DRUGS (2)
  1. OFLOCET [Suspect]
     Indication: PNEUMONIA
     Route: 049
     Dates: start: 20041005, end: 20041014
  2. CLAFORAN [Suspect]
     Dates: start: 20041005, end: 20041007

REACTIONS (1)
  - ASTHMA [None]
